FAERS Safety Report 7399625-3 (Version None)
Quarter: 2011Q2

REPORT INFORMATION
  Report Type: 
  Country: None (occurrence: None)
  Receive Date: 20110407
  Receipt Date: 20110308
  Transmission Date: 20111010
  Serious: Yes (Hospitalization, Other)
  Sender: FDA-Public Use
  Company Number: US-BAYER-200942286NA

PATIENT
  Sex: Female
  Weight: 66 kg

DRUGS (10)
  1. SERTRALINE HYDROCHLORIDE [Concomitant]
     Dosage: UNK
     Dates: end: 20090101
  2. RELPAX [Concomitant]
     Dosage: UNK
     Dates: start: 20040101
  3. IBUPROFEN [Concomitant]
     Dosage: UNK
  4. COUMADIN [Concomitant]
     Indication: PULMONARY EMBOLISM
     Dosage: UNK
     Dates: start: 20070801
  5. TOPAMAX [Concomitant]
     Dosage: UNK
     Dates: start: 20080101
  6. ASPIRIN [Concomitant]
     Dosage: UNK
     Dates: start: 20070101
  7. YASMIN [Suspect]
     Indication: PREMENSTRUAL SYNDROME
     Dosage: UNK
     Dates: start: 20050127, end: 20070201
  8. YAZ [Suspect]
     Dosage: UNK
     Dates: start: 20070329, end: 20070901
  9. TOPAMAX [Concomitant]
     Dosage: UNK
     Dates: start: 20040101
  10. RELPAX [Concomitant]
     Dosage: UNK
     Dates: start: 20080101

REACTIONS (3)
  - BACK PAIN [None]
  - DYSPNOEA [None]
  - PULMONARY EMBOLISM [None]
